FAERS Safety Report 13341192 (Version 1)
Quarter: 2017Q1

REPORT INFORMATION
  Report Type: Spontaneous
  Country: US (occurrence: US)
  Receive Date: 20170315
  Receipt Date: 20170315
  Transmission Date: 20170428
  Serious: Yes (Disabling, Other)
  Sender: FDA-Public Use
  Company Number: None

PATIENT
  Age: 39 Year
  Sex: Female
  Weight: 63 kg

DRUGS (1)
  1. BETAMETHASONE. [Suspect]
     Active Substance: BETAMETHASONE
     Indication: INTERVERTEBRAL DISC PROTRUSION
     Dates: start: 20160415, end: 20160415

REACTIONS (9)
  - Off label use [None]
  - Wrong technique in product usage process [None]
  - Pain [None]
  - Radiculopathy [None]
  - Arachnoiditis [None]
  - Loss of employment [None]
  - Spinal cord injury [None]
  - Quality of life decreased [None]
  - Paralysis [None]

NARRATIVE: CASE EVENT DATE: 20160415
